FAERS Safety Report 9194374 (Version 1)
Quarter: 2013Q1

REPORT INFORMATION
  Report Type: Spontaneous
  Country: CA (occurrence: CA)
  Receive Date: 20130327
  Receipt Date: 20130327
  Transmission Date: 20140127
  Serious: Yes (Hospitalization)
  Sender: FDA-Public Use
  Company Number: CA-BRISTOL-MYERS SQUIBB COMPANY-18700146

PATIENT
  Age: 48 Year
  Sex: Female

DRUGS (1)
  1. SPRYCEL [Suspect]
     Indication: CHRONIC MYELOID LEUKAEMIA
     Route: 048
     Dates: start: 20110508

REACTIONS (5)
  - Lower extremity mass [Recovering/Resolving]
  - Incision site pain [Not Recovered/Not Resolved]
  - Skin discolouration [Unknown]
  - Incision site complication [Unknown]
  - Incision site oedema [Not Recovered/Not Resolved]
